FAERS Safety Report 5576213-2 (Version None)
Quarter: 2007Q4

REPORT INFORMATION
  Report Type: 
  Country: None (occurrence: None)
  Receive Date: 20071228
  Receipt Date: 20071221
  Transmission Date: 20080405
  Serious: Yes (Other)
  Sender: FDA-Public Use
  Company Number: US-JNJFOC-20071205760

PATIENT
  Sex: Female

DRUGS (4)
  1. TOPAMAX [Suspect]
     Indication: MIGRAINE PROPHYLAXIS
     Route: 048
  2. COMBIPATCH [Concomitant]
     Indication: OESTROGEN REPLACEMENT THERAPY
  3. ZOMIG [Concomitant]
     Indication: HEADACHE
  4. AMBIEN [Concomitant]
     Indication: SLEEP DISORDER

REACTIONS (1)
  - MULTIPLE SCLEROSIS [None]
